FAERS Safety Report 9170846 (Version 1)
Quarter: 2013Q1

REPORT INFORMATION
  Report Type: Spontaneous
  Country: ES (occurrence: None)
  Receive Date: 20130312
  Receipt Date: 20130312
  Transmission Date: 20140127
  Serious: Yes (Other)
  Sender: FDA-Public Use
  Company Number: 2013-1030

PATIENT
  Age: 67 Year
  Sex: Female
  Weight: 68.5 kg

DRUGS (7)
  1. DYSPORT [Suspect]
     Dosage: 2000 UNITS (2000 UNITS, 1 IN 1 CYCLE (S), INTRAMUSCULAR
     Route: 030
     Dates: start: 20120522, end: 20120522
  2. LIORESAL (BACLOFEN) [Concomitant]
  3. FLUOXETINE (FLUOXETINE) [Concomitant]
  4. ATORVASTATIN (ATORVASTATIN) [Concomitant]
  5. CALCIUM W/ VITAMIN D (VITACAL) [Concomitant]
  6. SINTROM (ACENOCOUMAROL) [Concomitant]
  7. ALUDRINE (ISOPROTERENOL) [Concomitant]

REACTIONS (3)
  - Diaphragmatic paralysis [None]
  - Overdose [None]
  - Dyspnoea [None]
